FAERS Safety Report 7220962-7 (Version None)
Quarter: 2011Q1

REPORT INFORMATION
  Report Type: 
  Country: None (occurrence: None)
  Receive Date: 20110112
  Receipt Date: 20110104
  Transmission Date: 20110831
  Serious: Yes (Hospitalization, Other)
  Sender: FDA-Public Use
  Company Number: US-JNJFOC-20110101440

PATIENT
  Age: 67 Year
  Sex: Female

DRUGS (10)
  1. TOPIRAMATE [Suspect]
     Indication: CONVULSION PROPHYLAXIS
     Dosage: 100 QAM AND 200 MG QHS
     Route: 065
  2. TOPIRAMATE [Suspect]
     Dosage: 175 MG QHS
     Route: 065
  3. OXCARBAZEPINE [Interacting]
     Indication: ILL-DEFINED DISORDER
     Route: 065
  4. QUETIAPINE [Concomitant]
     Route: 065
  5. PHENYTOIN [Interacting]
     Indication: ILL-DEFINED DISORDER
     Dosage: 200 QAM AND 260 MG QHS
     Route: 065
  6. OXCARBAZEPINE [Interacting]
     Route: 065
  7. CLONAZEPAM [Concomitant]
     Indication: ANXIETY
     Route: 065
  8. TOPIRAMATE [Suspect]
     Dosage: FURTHER DECREASED BY AN ADDITIONAL 25 MG
     Route: 065
  9. OXCARBAZEPINE [Interacting]
     Route: 065
  10. PHENYTOIN [Interacting]
     Dosage: WAS DECREASED BY 30 MG
     Route: 065

REACTIONS (3)
  - DRUG INTERACTION [None]
  - TOXICITY TO VARIOUS AGENTS [None]
  - FALL [None]
